FAERS Safety Report 20644078 (Version 8)
Quarter: 2025Q1

REPORT INFORMATION
  Report Type: Spontaneous
  Country: US (occurrence: US)
  Receive Date: 20220328
  Receipt Date: 20250102
  Transmission Date: 20250408
  Serious: No
  Sender: PFIZER
  Company Number: US-PFIZER INC-202100963369

PATIENT
  Age: 76 Year
  Sex: Female

DRUGS (7)
  1. XELJANZ [Suspect]
     Active Substance: TOFACITINIB CITRATE
     Dosage: 10 MG, 2X/DAY
     Route: 048
     Dates: start: 20210626
  2. XELJANZ [Suspect]
     Active Substance: TOFACITINIB CITRATE
     Dosage: 5 MG, 2X/DAY
     Route: 048
     Dates: start: 202110
  3. XELJANZ [Suspect]
     Active Substance: TOFACITINIB CITRATE
  4. PREDNISONE [Concomitant]
     Active Substance: PREDNISONE
     Dosage: 30 MG, DAILY
  5. PREDNISONE [Concomitant]
     Active Substance: PREDNISONE
     Dosage: 5 MG, DAILY
  6. ASPIRIN [Concomitant]
     Active Substance: ASPIRIN
     Indication: Thrombosis prophylaxis
  7. VITAMIN C [Concomitant]
     Active Substance: ASCORBIC ACID

REACTIONS (15)
  - Condition aggravated [Recovered/Resolved]
  - Hot flush [Unknown]
  - Tremor [Unknown]
  - Sleep disorder [Recovered/Resolved]
  - Hyperhidrosis [Unknown]
  - Night sweats [Unknown]
  - Contusion [Unknown]
  - Wheezing [Unknown]
  - Rash macular [Unknown]
  - Aspartate aminotransferase increased [Unknown]
  - Dyspnoea exertional [Not Recovered/Not Resolved]
  - Macrocytosis [Unknown]
  - Microangiopathy [Unknown]
  - Dyspnoea [Not Recovered/Not Resolved]
  - Product dose omission issue [Unknown]

NARRATIVE: CASE EVENT DATE: 20210101
